FAERS Safety Report 9861635 (Version 1)
Quarter: 2014Q1

REPORT INFORMATION
  Report Type: Spontaneous
  Country: US (occurrence: None)
  Receive Date: 20140131
  Receipt Date: 20140131
  Transmission Date: 20141002
  Serious: Yes (Other)
  Sender: FDA-Public Use
  Company Number: None

PATIENT
  Age: 77 Year
  Sex: Female
  Weight: 61.24 kg

DRUGS (1)
  1. AMLODIPINE [Suspect]
     Indication: HYPERTENSION
     Dosage: 5 MG?1  1/2 PILLS A DAY/AM-1/2-8PM?MOUTH?10/17/13?9/14 WITH 12 PILLS TAKEN
     Route: 048
     Dates: start: 20131017

REACTIONS (2)
  - Gastrointestinal pain [None]
  - Product substitution issue [None]
